FAERS Safety Report 16708701 (Version 1)
Quarter: 2019Q3

REPORT INFORMATION
  Report Type: Spontaneous
  Country: US (occurrence: US)
  Receive Date: 20190816
  Receipt Date: 20190816
  Transmission Date: 20191004
  Serious: No
  Sender: FDA-Public Use
  Company Number: US-EMD SERONO-9090225

PATIENT
  Sex: Male
  Weight: 100 kg

DRUGS (4)
  1. MILK THISTLE PLUS                  /08512201/ [Concomitant]
     Indication: PRODUCT USED FOR UNKNOWN INDICATION
  2. GINKO                              /01003101/ [Concomitant]
     Active Substance: GINKGO
     Indication: PRODUCT USED FOR UNKNOWN INDICATION
  3. SEMAGLUTIDE [Concomitant]
     Active Substance: SEMAGLUTIDE
     Indication: PRODUCT USED FOR UNKNOWN INDICATION
     Dates: start: 20190201
  4. GLUCOPHAGE [Suspect]
     Active Substance: METFORMIN HYDROCHLORIDE
     Indication: TYPE 2 DIABETES MELLITUS
     Dates: start: 1999

REACTIONS (1)
  - Nonalcoholic fatty liver disease [Unknown]

NARRATIVE: CASE EVENT DATE: 2017
